FAERS Safety Report 24362271 (Version 1)
Quarter: 2024Q3

REPORT INFORMATION
  Report Type: Spontaneous
  Country: JP (occurrence: JP)
  Receive Date: 20240925
  Receipt Date: 20240925
  Transmission Date: 20241017
  Serious: Yes (Hospitalization)
  Sender: AMGEN
  Company Number: JP-AMGEN-JPNNI2024189737

PATIENT
  Age: 5 Year
  Sex: Male
  Weight: 16.8 kg

DRUGS (4)
  1. BUPHENYL [Suspect]
     Active Substance: SODIUM PHENYLBUTYRATE
     Indication: Progressive familial intrahepatic cholestasis
     Dosage: 600 MILLIGRAM/KILOGRAM, QD
     Route: 048
     Dates: start: 20190918, end: 20240806
  2. BUPHENYL [Suspect]
     Active Substance: SODIUM PHENYLBUTYRATE
     Dosage: 450 MILLIGRAM/KILOGRAM, QD
     Route: 048
     Dates: start: 20240809, end: 20240908
  3. BUPHENYL [Suspect]
     Active Substance: SODIUM PHENYLBUTYRATE
     Dosage: 600 MILLIGRAM/KILOGRAM, QD
     Route: 048
     Dates: start: 20240909
  4. LEVETIRACETAM [Concomitant]
     Active Substance: LEVETIRACETAM
     Indication: Prophylaxis
     Dosage: 680 MILLIGRAM, QD
     Route: 048

REACTIONS (1)
  - Cranioplasty [Recovered/Resolved]

NARRATIVE: CASE EVENT DATE: 20240806
